FAERS Safety Report 17538421 (Version 1)
Quarter: 2020Q1

REPORT INFORMATION
  Report Type: Spontaneous
  Country: GB (occurrence: GB)
  Receive Date: 20200313
  Receipt Date: 20200313
  Transmission Date: 20200409
  Serious: Yes (Life-Threatening, Hospitalization, Disabling, Other)
  Sender: FDA-Public Use
  Company Number: GB-ELI_LILLY_AND_COMPANY-GB202003004419

PATIENT
  Age: 76 Year
  Sex: Female
  Weight: 61 kg

DRUGS (1)
  1. DULOXETINE HYDROCHLORIDE. [Suspect]
     Active Substance: DULOXETINE HYDROCHLORIDE
     Indication: PRODUCT USED FOR UNKNOWN INDICATION
     Dosage: 60 MG, UNKNOWN
     Dates: start: 20200213, end: 20200213

REACTIONS (5)
  - Blood potassium decreased [Unknown]
  - Renal injury [Unknown]
  - Blood sodium decreased [Unknown]
  - Malaise [Recovered/Resolved with Sequelae]
  - Muscle disorder [Unknown]

NARRATIVE: CASE EVENT DATE: 20200213
